FAERS Safety Report 8776672 (Version 2)
Quarter: 2014Q2

REPORT INFORMATION
  Report Type: Spontaneous
  Country: ES (occurrence: ES)
  Receive Date: 20120910
  Receipt Date: 20131002
  Transmission Date: 20141212
  Serious: Yes (Life-Threatening, Hospitalization, Other)
  Sender: FDA-Public Use
  Company Number: ES-009507513-2010SP056166

PATIENT
  Age: 17 Year
  Sex: Male
  Weight: 62 kg

DRUGS (13)
  1. BRIDION [Suspect]
     Indication: NEUROMUSCULAR BLOCKADE REVERSAL
     Dosage: 200 MG, ONCE
     Route: 042
     Dates: start: 20101014, end: 20101014
  2. CEFAZOLIN SODIUM [Concomitant]
     Indication: ANTIBIOTIC PROPHYLAXIS
     Dosage: 2 G, ONCE
     Route: 042
     Dates: start: 20101014, end: 20101014
  3. BEBETINA [Concomitant]
     Indication: ANALGESIC THERAPY
     Dosage: 1 G, ONCE
     Route: 042
     Dates: start: 20101014, end: 20101014
  4. DEXKETOPROFEN [Concomitant]
     Indication: ANALGESIC THERAPY
     Dosage: 50 MG, ONCE
     Route: 042
     Dates: start: 20101014, end: 20101014
  5. ONDANSETRON [Concomitant]
     Indication: PROPHYLAXIS OF NAUSEA AND VOMITING
     Dosage: 4 MG, ONCE
     Route: 042
     Dates: start: 20101014, end: 20101014
  6. MIDAZENON [Concomitant]
     Indication: SEDATIVE THERAPY
     Dosage: 2 MG, UNK
  7. LEVOBUPIVACAINE [Concomitant]
     Indication: NERVE BLOCK
     Dosage: 30 ML OF 0.375%
  8. LEVOBUPIVACAINE [Concomitant]
     Dosage: 12 MG, UNK
  9. FENTANYL [Concomitant]
     Indication: SPINAL ANAESTHESIA
     Dosage: 10 MICROGRAM, UNK
  10. FENTANYL [Concomitant]
     Dosage: 150 MICROGRAM, UNK
  11. CRIXOFOL [Concomitant]
     Indication: INDUCTION OF ANAESTHESIA
     Dosage: 150 MG, UNK
  12. ROCURONIUM BROMIDE [Concomitant]
     Indication: MECHANICAL VENTILATION
     Dosage: 20 MG, UNK
  13. SEVOFLURANE [Concomitant]
     Dosage: OXYGEN AND AIR 1:1 MIXTURE AND 0.8 MAC SEVOFLURANE

REACTIONS (7)
  - Anaphylactic reaction [Recovered/Resolved]
  - Lip oedema [Recovered/Resolved]
  - Bronchospasm [Recovered/Resolved]
  - Flushing [Recovered/Resolved]
  - Eyelid oedema [Recovered/Resolved]
  - Tachycardia [Recovered/Resolved]
  - Blood pressure decreased [Recovered/Resolved]
